FAERS Safety Report 9441832 (Version 3)
Quarter: 2013Q4

REPORT INFORMATION
  Report Type: Spontaneous
  Country: US (occurrence: US)
  Receive Date: 20130806
  Receipt Date: 20131003
  Transmission Date: 20140711
  Serious: No
  Sender: FDA-Public Use
  Company Number: US-PFIZER INC-2013224226

PATIENT
  Age: 77 Year
  Sex: Female
  Weight: 77.1 kg

DRUGS (7)
  1. PREMPRO [Suspect]
     Indication: HORMONE THERAPY
     Dosage: 0.45/1.5 MG, 1X/DAY
     Route: 048
     Dates: start: 20090809
  2. PREMPRO [Suspect]
     Indication: HOT FLUSH
     Dosage: 0.3/1.5MG, 1X/DAY
     Route: 048
  3. PREMPRO [Suspect]
     Dosage: 0.3/1.5MG, 1X/DAY
     Route: 048
     Dates: start: 20130602, end: 20130630
  4. ATENOLOL [Concomitant]
     Indication: CARDIOVASCULAR DISORDER
     Dosage: 12.5 MG, QD
  5. LIPITOR [Concomitant]
     Dosage: UNK
  6. ATORVASTATIN [Concomitant]
     Dosage: 20 MG, QD
  7. ESTRACE VAGINAL CREAM [Concomitant]
     Dosage: UNK, 1-2 TIMES WEEKLY

REACTIONS (1)
  - Drug ineffective [Unknown]
